FAERS Safety Report 9709302 (Version 2)
Quarter: 2014Q1

REPORT INFORMATION
  Report Type: Spontaneous
  Country: US (occurrence: US)
  Receive Date: 20131125
  Receipt Date: 20140213
  Transmission Date: 20141002
  Serious: Yes (Hospitalization)
  Sender: FDA-Public Use
  Company Number: US-GILEAD-2013-0088613

PATIENT
  Age: 78 Year
  Sex: Male

DRUGS (6)
  1. LETAIRIS [Suspect]
     Indication: PULMONARY ARTERIAL HYPERTENSION
     Dosage: 10 MG, QD
     Route: 048
     Dates: start: 20130926
  2. SILDENAFIL [Concomitant]
  3. TOFRANIL [Concomitant]
  4. TERAZOSIN [Concomitant]
  5. REVATIO [Concomitant]
  6. TYVASO [Concomitant]

REACTIONS (2)
  - Dyspnoea [Unknown]
  - Fluid overload [Unknown]
